FAERS Safety Report 6915486-8 (Version None)
Quarter: 2010Q3

REPORT INFORMATION
  Report Type: 
  Country: None (occurrence: None)
  Receive Date: 20100806
  Receipt Date: 20100806
  Transmission Date: 20110219
  Serious: Yes (Life-Threatening, Hospitalization)
  Sender: FDA-Public Use
  Company Number: None

PATIENT
  Age: 35 Year
  Sex: Male
  Weight: 81.6 kg

DRUGS (2)
  1. NORTRIPTYLINE HCL [Suspect]
     Indication: DEPRESSION
     Dosage: 25 MG EVERY DAY PO
     Route: 048
     Dates: start: 20090917, end: 20090924
  2. NORTRIPTYLINE HCL [Suspect]
     Indication: PAIN
     Dosage: 25 MG EVERY DAY PO
     Route: 048
     Dates: start: 20090917, end: 20090924

REACTIONS (2)
  - CONVULSION [None]
  - MYOCARDIAL INFARCTION [None]
